APPROVED DRUG PRODUCT: BUPROPION HYDROCHLORIDE
Active Ingredient: BUPROPION HYDROCHLORIDE
Strength: 300MG
Dosage Form/Route: TABLET, EXTENDED RELEASE;ORAL
Application: A077715 | Product #002
Applicant: ACTAVIS LABORATORIES FL INC
Approved: Jun 13, 2007 | RLD: No | RS: No | Type: DISCN